FAERS Safety Report 5529975-4 (Version None)
Quarter: 2007Q4

REPORT INFORMATION
  Report Type: 
  Country: None (occurrence: None)
  Receive Date: 20071129
  Receipt Date: 20071119
  Transmission Date: 20080405
  Serious: No
  Sender: FDA-Public Use
  Company Number: US-ABBOTT-07P-163-0422945-00

PATIENT
  Sex: Female
  Weight: 109.09 kg

DRUGS (1)
  1. MERIDIA [Suspect]
     Indication: WEIGHT CONTROL
     Route: 048
     Dates: start: 20071026, end: 20071028

REACTIONS (22)
  - ABDOMINAL PAIN [None]
  - ACTIVITIES OF DAILY LIVING IMPAIRED [None]
  - ANGER [None]
  - ANXIETY [None]
  - ASTHENIA [None]
  - ASTHENOPIA [None]
  - BRUXISM [None]
  - DIARRHOEA [None]
  - DIZZINESS [None]
  - DRUG INTOLERANCE [None]
  - FATIGUE [None]
  - FEELING ABNORMAL [None]
  - FEELING COLD [None]
  - HEADACHE [None]
  - HEART RATE INCREASED [None]
  - HOT FLUSH [None]
  - INSOMNIA [None]
  - MIGRAINE [None]
  - PARAESTHESIA [None]
  - VISION BLURRED [None]
  - VISUAL DISTURBANCE [None]
  - VOMITING [None]
